FAERS Safety Report 7871532-9 (Version None)
Quarter: 2011Q4

REPORT INFORMATION
  Report Type: 
  Country: None (occurrence: None)
  Receive Date: 20111029
  Receipt Date: 20110303
  Transmission Date: 20120403
  Serious: No
  Sender: FDA-Public Use
  Company Number: US-AMGEN-USASP2011012109

PATIENT
  Age: 34 Year
  Sex: Female

DRUGS (2)
  1. ARAVA [Concomitant]
     Dosage: 1 MG, QD
     Dates: start: 20100801
  2. ENBREL [Suspect]
     Indication: RHEUMATOID ARTHRITIS
     Dosage: 50 MG, QWK
     Dates: start: 20110214, end: 20110225

REACTIONS (5)
  - ARTHRALGIA [None]
  - RASH [None]
  - INJECTION SITE ERYTHEMA [None]
  - INJECTION SITE PAIN [None]
  - DRUG HYPERSENSITIVITY [None]
